FAERS Safety Report 4766153-0 (Version None)
Quarter: 2005Q3

REPORT INFORMATION
  Report Type: 
  Country: None (occurrence: None)
  Receive Date: 20050909
  Receipt Date: 20050905
  Transmission Date: 20060218
  Serious: Yes (Life-Threatening)
  Sender: FDA-Public Use
  Company Number: 2005-132189-NL

PATIENT
  Age: 38 Year
  Sex: Female

DRUGS (2)
  1. DANAPAROID SODIUM [Suspect]
     Indication: INFARCTION
     Dosage: 2500 ANTI_KA INTRVENOUS (NOS
     Route: 042
     Dates: start: 20050820, end: 20050820
  2. DANAPAROID SODIUM [Suspect]
     Indication: PULMONARY EMBOLISM
     Dosage: 2500 ANTI_KA INTRVENOUS (NOS
     Route: 042
     Dates: start: 20050820, end: 20050820

REACTIONS (1)
  - ANAPHYLACTIC SHOCK [None]
